FAERS Safety Report 18883139 (Version 3)
Quarter: 2021Q2

REPORT INFORMATION
  Report Type: Report from Study
  Country: CA (occurrence: CA)
  Receive Date: 20210212
  Receipt Date: 20210506
  Transmission Date: 20210717
  Serious: Yes (Other)
  Sender: FDA-Public Use
  Company Number: CA-EMD SERONO-9217279

PATIENT
  Sex: Female

DRUGS (2)
  1. REBIF [Suspect]
     Active Substance: INTERFERON BETA-1A
     Indication: MULTIPLE SCLEROSIS
     Route: 058
     Dates: start: 20000301
  2. ASPIRIN                            /00002701/ [Suspect]
     Active Substance: ASPIRIN
     Indication: PRODUCT USED FOR UNKNOWN INDICATION

REACTIONS (11)
  - Urinary tract infection [Unknown]
  - Abdominal discomfort [Unknown]
  - Haemoglobin abnormal [Unknown]
  - Diarrhoea [Recovered/Resolved]
  - Ill-defined disorder [Not Recovered/Not Resolved]
  - Pulmonary hypertension [Not Recovered/Not Resolved]
  - Dysphagia [Unknown]
  - Drug hypersensitivity [Unknown]
  - Dementia [Unknown]
  - Vomiting [Recovered/Resolved]
  - Faeces discoloured [Unknown]
